FAERS Safety Report 5110162-9 (Version None)
Quarter: 2006Q3

REPORT INFORMATION
  Report Type: 
  Country: None (occurrence: None)
  Receive Date: 20060919
  Receipt Date: 20060919
  Transmission Date: 20061208
  Serious: Yes (Life-Threatening)
  Sender: FDA-Public Use
  Company Number: None

PATIENT
  Age: 22 Year
  Sex: Male
  Weight: 63 kg

DRUGS (11)
  1. BROMOCRIPTINE MESYLATE [Suspect]
     Indication: DRUG THERAPY
     Dosage: 7.5MG  TWICE DAILY  PO
     Route: 048
     Dates: start: 20060804, end: 20060828
  2. METOPROLOL [Concomitant]
  3. ETIDRONATE DISODIUM [Concomitant]
  4. TOPAMAX [Concomitant]
  5. KEPPRA [Concomitant]
  6. CLONIDINE [Concomitant]
  7. BISACODYL [Concomitant]
  8. PREVACID [Concomitant]
  9. OXYCODONE HCL [Concomitant]
  10. TYLENOL [Concomitant]
  11. DSW 0.45S WITH 20MEQ KCL [Concomitant]

REACTIONS (6)
  - CLONUS [None]
  - DRUG WITHDRAWAL SYNDROME [None]
  - MENTAL IMPAIRMENT [None]
  - PYREXIA [None]
  - TACHYCARDIA [None]
  - URINE OUTPUT DECREASED [None]
